FAERS Safety Report 21475966 (Version 1)
Quarter: 2022Q4

REPORT INFORMATION
  Report Type: Spontaneous
  Country: US (occurrence: None)
  Receive Date: 20221019
  Receipt Date: 20221019
  Transmission Date: 20230113
  Serious: No
  Sender: FDA-Public Use
  Company Number: US-ADAMAS Pharma-ADM202206-001715

PATIENT
  Sex: Male

DRUGS (2)
  1. GOCOVRI [Suspect]
     Active Substance: AMANTADINE
     Indication: Dysphonia
     Dosage: 274MG
  2. GOCOVRI [Suspect]
     Active Substance: AMANTADINE
     Indication: Dyskinesia

REACTIONS (1)
  - Livedo reticularis [Unknown]
